FAERS Safety Report 4798811-6 (Version None)
Quarter: 2005Q4

REPORT INFORMATION
  Report Type: 
  Country: None (occurrence: None)
  Receive Date: 20051014
  Receipt Date: 20051004
  Transmission Date: 20060501
  Serious: Yes (Hospitalization)
  Sender: FDA-Public Use
  Company Number: US-MERCK-0510USA03258

PATIENT
  Age: 74 Year
  Sex: Male

DRUGS (21)
  1. TIAMATE [Concomitant]
     Indication: ATRIAL FIBRILLATION
     Route: 042
  2. DIURIL [Concomitant]
     Route: 065
  3. SPIRONOLACTONE [Concomitant]
     Route: 065
  4. ALLOPURINOL [Concomitant]
     Route: 065
  5. ATORVASTATIN CALCIUM [Concomitant]
     Route: 065
  6. FLUTICASONE PROPIONATE AND SALMETEROL XINAFOATE [Concomitant]
     Route: 065
  7. MOXIFLOXACIN HYDROCHLORIDE [Concomitant]
     Indication: NEUTROPENIA
     Route: 065
  8. FLUCONAZOLE [Concomitant]
     Indication: NEUTROPENIA
     Route: 065
  9. CYTARABINE [Concomitant]
     Indication: CHEMOTHERAPY
     Route: 065
  10. IDARUBICIN HYDROCHLORIDE [Concomitant]
     Indication: CHEMOTHERAPY
     Route: 065
  11. VANCOMYCIN [Concomitant]
     Route: 065
  12. CEFEPIME [Concomitant]
     Route: 065
  13. TOBRAMYCIN [Concomitant]
     Route: 065
  14. MEROPENEM [Concomitant]
     Route: 065
  15. VORICONAZOLE [Concomitant]
     Route: 065
  16. TRIMETHOPRIM [Concomitant]
     Route: 065
  17. SULFAMETHOXAZOLE [Concomitant]
     Route: 065
  18. LOPERAMIDE OXIDE [Concomitant]
     Route: 065
  19. LOPERAMIDE OXIDE [Concomitant]
     Route: 065
  20. AMIODARONE [Concomitant]
     Route: 065
  21. TIAMATE [Suspect]
     Route: 048

REACTIONS (10)
  - ABDOMINAL DISTENSION [None]
  - ABDOMINAL INFECTION [None]
  - ATRIAL FIBRILLATION [None]
  - BLOOD CREATININE INCREASED [None]
  - CHRONIC OBSTRUCTIVE PULMONARY DISEASE [None]
  - DIARRHOEA [None]
  - ENTEROCOLITIS [None]
  - GASTROINTESTINAL HYPOMOTILITY [None]
  - NEUTROPENIA [None]
  - STENOTROPHOMONAS INFECTION [None]
